FAERS Safety Report 10064163 (Version 1)
Quarter: 2014Q1

REPORT INFORMATION
  Report Type: Spontaneous
  Country: US (occurrence: None)
  Receive Date: 20140130
  Receipt Date: 20140130
  Transmission Date: 20141002
  Serious: Yes (Other)
  Sender: FDA-Public Use
  Company Number: 2010S1000390

PATIENT
  Age: 73 Year
  Sex: Female
  Weight: 84.82 kg

DRUGS (6)
  1. FLEET PHOSPHO-SODA ORAL SALINE LAXATIVE, GINGER-LEMON FLAVOR [Suspect]
     Indication: COLONOSCOPY
     Dosage: 2 IN 24 HOURS
     Route: 048
     Dates: start: 20050505, end: 20050505
  2. CARDIZEM [Concomitant]
  3. LISINOPRIL [Concomitant]
  4. GLYBURIDE [Concomitant]
  5. ZOCOR [Concomitant]
  6. ASCRIPTIN [Concomitant]

REACTIONS (5)
  - Renal failure acute [None]
  - Hypovolaemia [None]
  - Renal tubular necrosis [None]
  - Nephrosclerosis [None]
  - Renal failure chronic [None]
